FAERS Safety Report 19612934 (Version 1)
Quarter: 2021Q3

REPORT INFORMATION
  Report Type: Spontaneous
  Country: US (occurrence: US)
  Receive Date: 20210724
  Receipt Date: 20210724
  Transmission Date: 20211014
  Serious: Yes (Hospitalization)
  Sender: FDA-Public Use
  Company Number: None

PATIENT
  Age: 54 Year
  Sex: Female

DRUGS (13)
  1. GABAPENTIN. [Concomitant]
     Active Substance: GABAPENTIN
  2. AMBRISENTAN 10MG TAB [Suspect]
     Active Substance: AMBRISENTAN
     Indication: PULMONARY ARTERIAL HYPERTENSION
     Route: 048
     Dates: start: 20210121
  3. LEVOTHYROXIN [Concomitant]
     Active Substance: LEVOTHYROXINE
  4. MYCOPHENOLIC [Concomitant]
     Active Substance: MYCOPHENOLIC ACID
  5. TADALAFIL 20MG TAB [Suspect]
     Active Substance: TADALAFIL
     Indication: PULMONARY ARTERIAL HYPERTENSION
     Route: 048
     Dates: start: 20181206
  6. DULOXETINE. [Concomitant]
     Active Substance: DULOXETINE
  7. VITAMIN D [Concomitant]
     Active Substance: VITAMIN D NOS
  8. DOXYCYC MONO [Concomitant]
     Active Substance: DOXYCYCLINE
  9. REMODULIN [Concomitant]
     Active Substance: TREPROSTINIL
  10. TERGRETOL [Concomitant]
  11. WARFARIN [Concomitant]
     Active Substance: WARFARIN
  12. APAP/CODEINE [Concomitant]
     Active Substance: ACETAMINOPHEN\CODEINE PHOSPHATE
  13. PHENOBARB [Concomitant]
     Active Substance: PHENOBARBITAL SODIUM

REACTIONS (4)
  - Dyspnoea [None]
  - Diarrhoea [None]
  - Syncope [None]
  - Angina pectoris [None]

NARRATIVE: CASE EVENT DATE: 20210722
